FAERS Safety Report 5911834-6 (Version None)
Quarter: 2008Q4

REPORT INFORMATION
  Report Type: 
  Country: None (occurrence: None)
  Receive Date: 20081008
  Receipt Date: 20080929
  Transmission Date: 20090506
  Serious: Yes (Hospitalization)
  Sender: FDA-Public Use
  Company Number: JP-ASTRAZENECA-2008AP07673

PATIENT
  Age: 53 Year
  Sex: Male

DRUGS (3)
  1. CRESTOR [Suspect]
     Indication: HYPERLIPIDAEMIA
     Route: 048
     Dates: start: 20070901, end: 20080908
  2. URINORM [Suspect]
     Indication: GOUT
     Dosage: DOSE UNKNOWN
     Route: 048
     Dates: start: 20080101, end: 20080801
  3. ZETIA [Suspect]
     Indication: HYPERLIPIDAEMIA
     Dosage: DOSE UNKNOWN
     Route: 048
     Dates: start: 20080401, end: 20080801

REACTIONS (1)
  - LIVER DISORDER [None]
